FAERS Safety Report 8063903-5 (Version None)
Quarter: 2012Q1

REPORT INFORMATION
  Report Type: 
  Country: None (occurrence: None)
  Receive Date: 20120123
  Receipt Date: 20120114
  Transmission Date: 20120608
  Serious: Yes (Other)
  Sender: FDA-Public Use
  Company Number: US-NAPPMUNDI-USA-2011-0074909

PATIENT
  Sex: Female

DRUGS (3)
  1. CARDIZEM [Concomitant]
     Indication: OESOPHAGEAL SPASM
     Dosage: 120 MG, BID
     Route: 048
     Dates: start: 20050101
  2. OXYCONTIN [Suspect]
     Indication: PRODUCT USED FOR UNKNOWN INDICATION
     Dosage: UNK
  3. PROTONIX [Concomitant]
     Indication: OESOPHAGEAL SPASM
     Dosage: 40 MG, BID
     Route: 048
     Dates: start: 20050101

REACTIONS (6)
  - GASTRIC BYPASS [None]
  - TOOTH DISORDER [None]
  - MALABSORPTION [None]
  - TOOTH LOSS [None]
  - BARRETT'S OESOPHAGUS [None]
  - DRY MOUTH [None]
